FAERS Safety Report 21594469 (Version 1)
Quarter: 2022Q4

REPORT INFORMATION
  Report Type: Spontaneous
  Country: BR (occurrence: BR)
  Receive Date: 20221115
  Receipt Date: 20221115
  Transmission Date: 20230112
  Serious: Yes (Other)
  Sender: FDA-Public Use
  Company Number: BR-002147023-NVSC2022BR235133

PATIENT
  Age: 74 Year
  Sex: Female
  Weight: 56 kg

DRUGS (2)
  1. TEGRETOL XR [Suspect]
     Active Substance: CARBAMAZEPINE
     Indication: Herpes virus infection
     Dosage: 1 DOSAGE FORM, Q12H (STOPPED ON 13 OCT 2022, AFTER USE OF 5 TABLETS)
     Route: 048
     Dates: start: 20221011, end: 20221013
  2. METOPROLOL [Concomitant]
     Active Substance: METOPROLOL
     Indication: Cardiac disorder
     Dosage: 1 DOSAGE FORM, Q12H
     Route: 048
     Dates: start: 202203

REACTIONS (8)
  - Malaise [Recovered/Resolved]
  - Dysstasia [Recovered/Resolved]
  - Sluggishness [Recovered/Resolved]
  - Decreased interest [Recovered/Resolved]
  - Depression [Recovered/Resolved]
  - Headache [Recovered/Resolved]
  - Psychiatric symptom [Unknown]
  - Off label use [Recovered/Resolved]

NARRATIVE: CASE EVENT DATE: 20221001
